FAERS Safety Report 5209824-4 (Version None)
Quarter: 2006Q4

REPORT INFORMATION
  Report Type: 
  Country: None (occurrence: None)
  Receive Date: 20061130
  Receipt Date: 20051027
  Transmission Date: 20070319
  Serious: Yes (Other)
  Sender: FDA-Public Use
  Company Number: 2005149708

PATIENT
  Age: 26 Year
  Sex: Female

DRUGS (2)
  1. ZYVOX [Suspect]
     Indication: ABSCESS
     Dosage: 1200 MG (600 MD, BID); ORAL
     Route: 048
  2. VANCOMYCIN HYDROCHLORIDE [Concomitant]

REACTIONS (4)
  - ANAEMIA [None]
  - DYSPEPSIA [None]
  - NAUSEA [None]
  - NEUROPATHY PERIPHERAL [None]
